FAERS Safety Report 13045972 (Version 2)
Quarter: 2017Q1

REPORT INFORMATION
  Report Type: Spontaneous
  Country: IT (occurrence: IT)
  Receive Date: 20161220
  Receipt Date: 20170117
  Transmission Date: 20170428
  Serious: Yes (Other)
  Sender: FDA-Public Use
  Company Number: IT-PFIZER INC-2016585853

PATIENT
  Age: 52 Year
  Sex: Female

DRUGS (2)
  1. DUAVIVE [Suspect]
     Active Substance: BAZEDOXIFENE ACETATE\ESTROGENS, CONJUGATED
     Dosage: UNK
     Dates: start: 2016
  2. TACHIPIRINA [Interacting]
     Active Substance: ACETAMINOPHEN
     Indication: NASOPHARYNGITIS
     Dosage: 4 TABLETS OF PARACETAMOL

REACTIONS (6)
  - Thrombocytopenia [Recovered/Resolved]
  - Drug interaction [Recovering/Resolving]
  - Asthenia [Unknown]
  - Transaminases increased [Unknown]
  - Hepatosplenomegaly [Recovering/Resolving]
  - Amylase increased [Not Recovered/Not Resolved]
